FAERS Safety Report 8902454 (Version 1)
Quarter: 2012Q4

REPORT INFORMATION
  Report Type: 
  Country: US (occurrence: US)
  Receive Date: 20121112
  Receipt Date: 20121112
  Transmission Date: 20130627
  Serious: Yes (Other)
  Sender: FDA-Public Use
  Company Number: US-ELI_LILLY_AND_COMPANY-US201210009634

PATIENT

DRUGS (1)
  1. FORTEO [Suspect]
     Dosage: UNK

REACTIONS (1)
  - Tibia fracture [Not Recovered/Not Resolved]
